FAERS Safety Report 11478961 (Version 4)
Quarter: 2015Q4

REPORT INFORMATION
  Report Type: Report from Study
  Country: US (occurrence: US)
  Receive Date: 20150909
  Receipt Date: 20151019
  Transmission Date: 20160304
  Serious: Yes (Hospitalization)
  Sender: FDA-Public Use
  Company Number: US-AMGEN-USASL2015075496

PATIENT
  Age: 37 Year
  Sex: Female

DRUGS (1)
  1. BLINCYTO [Suspect]
     Active Substance: BLINATUMOMAB
     Indication: PRODUCT USED FOR UNKNOWN INDICATION
     Dosage: UNK
     Route: 065

REACTIONS (7)
  - Hospitalisation [Not Recovered/Not Resolved]
  - Insomnia [Unknown]
  - Disease recurrence [Unknown]
  - Feeling abnormal [Unknown]
  - Depressed mood [Unknown]
  - Fatigue [Unknown]
  - Drug ineffective [Unknown]
